FAERS Safety Report 7001004-5 (Version None)
Quarter: 2010Q3

REPORT INFORMATION
  Report Type: 
  Country: None (occurrence: None)
  Receive Date: 20100920
  Receipt Date: 20100222
  Transmission Date: 20110219
  Serious: Yes (Other)
  Sender: FDA-Public Use
  Company Number: US-ASTRAZENECA-2007UW12515

PATIENT
  Age: 16148 Day
  Sex: Female
  Weight: 62.1 kg

DRUGS (27)
  1. SEROQUEL [Suspect]
     Indication: SLEEP DISORDER
     Route: 048
     Dates: start: 20010101, end: 20060417
  2. SEROQUEL [Suspect]
     Indication: DEPRESSION
     Route: 048
     Dates: start: 20010101, end: 20060417
  3. SEROQUEL [Suspect]
     Route: 048
     Dates: start: 20040401
  4. SEROQUEL [Suspect]
     Route: 048
     Dates: start: 20040401
  5. SEROQUEL [Suspect]
     Route: 048
     Dates: start: 20040510
  6. SEROQUEL [Suspect]
     Route: 048
     Dates: start: 20040510
  7. SEROQUEL [Suspect]
     Route: 048
     Dates: start: 20040603
  8. SEROQUEL [Suspect]
     Route: 048
     Dates: start: 20040603
  9. SEROQUEL [Suspect]
     Route: 048
     Dates: start: 20070903
  10. SEROQUEL [Suspect]
     Route: 048
     Dates: start: 20070903
  11. AMBIEN [Concomitant]
     Dates: start: 20051225
  12. AMBIEN [Concomitant]
     Dates: start: 20070903
  13. PROMETHAZINE [Concomitant]
     Dates: start: 20010815
  14. ACIPHEX [Concomitant]
  15. EFFEXOR [Concomitant]
     Dates: start: 20010810
  16. EFFEXOR [Concomitant]
     Dates: start: 20070903
  17. ZEBUTAL [Concomitant]
     Dates: start: 20011121
  18. LORAZEPAM [Concomitant]
     Dates: start: 20020506
  19. CEPHALEXIN [Concomitant]
     Dates: start: 20030331
  20. HYDROCODONE [Concomitant]
     Dosage: 5/500
     Dates: start: 20030331
  21. ZYPREXA [Concomitant]
     Dates: start: 20040804
  22. PLAVIX [Concomitant]
     Dates: start: 20011112
  23. HALDOL [Concomitant]
  24. TRAZODONE HCL [Concomitant]
  25. LASIX [Concomitant]
     Dates: start: 20070903
  26. MACROBID [Concomitant]
     Dates: start: 20070903
  27. GABAPENTIN [Concomitant]

REACTIONS (1)
  - PANCREATITIS ACUTE [None]
